FAERS Safety Report 4311869-3 (Version None)
Quarter: 2004Q1

REPORT INFORMATION
  Report Type: 
  Country: None (occurrence: None)
  Receive Date: 20040302
  Receipt Date: 20040106
  Transmission Date: 20041129
  Serious: No
  Sender: FDA-Public Use
  Company Number: 200410486BWH

PATIENT
  Age: 47 Year
  Sex: Male

DRUGS (3)
  1. LEVITRA [Suspect]
     Indication: ERECTILE DYSFUNCTION
     Dosage: 20 MG, TOTAL DAILY, ORAL; 10 MG, TOTAL DAILY, ORAL
     Route: 048
  2. ALLEGRA [Concomitant]
  3. PRILOSEC [Concomitant]

REACTIONS (4)
  - BACK PAIN [None]
  - HEADACHE [None]
  - MYALGIA [None]
  - TENDON INJURY [None]
